FAERS Safety Report 13591672 (Version 5)
Quarter: 2017Q3

REPORT INFORMATION
  Report Type: Spontaneous
  Country: KR (occurrence: KR)
  Receive Date: 20170530
  Receipt Date: 20170823
  Transmission Date: 20171127
  Serious: No
  Sender: FDA-Public Use
  Company Number: KR-009507513-1705KOR013812

PATIENT
  Age: 50 Year
  Sex: Female
  Weight: 48.2 kg

DRUGS (18)
  1. DEXAMETHASONE SODIUM PHOSPHATE. [Concomitant]
     Active Substance: DEXAMETHASONE SODIUM PHOSPHATE
     Indication: PREMEDICATION
     Dosage: 5 MG, UNK
     Route: 042
     Dates: start: 20170313, end: 20170313
  2. ATROPINE. [Concomitant]
     Active Substance: ATROPINE
     Indication: PREMEDICATION
     Dosage: 0.25 MG, UNK
     Route: 042
     Dates: start: 20170313, end: 20170313
  3. NASERON [Concomitant]
     Indication: PREMEDICATION
     Dosage: 0.3 MG, UNK
     Route: 042
     Dates: start: 20170313, end: 20170313
  4. ASCORBIC ACID. [Concomitant]
     Active Substance: ASCORBIC ACID
     Indication: VITAMIN SUPPLEMENTATION
     Dosage: 20 G, UNK
     Route: 042
     Dates: start: 20170313, end: 20170315
  5. NASERON [Concomitant]
     Indication: PROPHYLAXIS
     Dosage: 0.1 MG, QD
     Route: 048
     Dates: start: 20170314, end: 20170315
  6. PENIRAMIN [Concomitant]
     Indication: PREMEDICATION
     Dosage: 1 AMPLE, UNK
     Route: 042
     Dates: start: 20170313, end: 20170313
  7. EMEND (FOSAPREPITANT DIMEGLUMINE) [Suspect]
     Active Substance: FOSAPREPITANT DIMEGLUMINE
     Indication: PROPHYLAXIS OF NAUSEA AND VOMITING
     Dosage: 150 MG, ONCE
     Route: 042
     Dates: start: 20170313, end: 20170313
  8. FERBON [Concomitant]
     Indication: CHEMOTHERAPY
     Dosage: 588 MG, UNK
     Route: 042
     Dates: start: 20170313, end: 20170314
  9. FLUOROURACIL. [Concomitant]
     Active Substance: FLUOROURACIL
     Dosage: 3528 MG, UNK
     Route: 042
     Dates: start: 20170314, end: 20170315
  10. SODIUM SELENITE [Concomitant]
     Active Substance: SODIUM SELENITE
     Indication: NUTRITIONAL SUPPLEMENTATION
     Dosage: 1 VIAL, BID
     Route: 042
     Dates: start: 20170313, end: 20170313
  11. CALMTOP [Concomitant]
     Indication: CHEMOTHERAPY
     Dosage: 220,5 MG, UNK
     Route: 042
     Dates: start: 20170313, end: 20170313
  12. ERBITUX [Concomitant]
     Active Substance: CETUXIMAB
     Indication: CHEMOTHERAPY
     Dosage: 735 MG, UNK
     Route: 042
     Dates: start: 20170313, end: 20170313
  13. GASTREX (ECABET SODIUM) [Concomitant]
     Indication: PROPHYLAXIS
     Dosage: 1 G, UNK
     Route: 048
     Dates: start: 20170313, end: 20170315
  14. ENCOVER [Concomitant]
     Indication: NUTRITIONAL SUPPLEMENTATION
     Dosage: 200 ML, UNK
     Route: 048
     Dates: start: 20170227, end: 20170327
  15. FLUOROURACIL. [Concomitant]
     Active Substance: FLUOROURACIL
     Indication: CHEMOTHERAPY
     Dosage: 588 MG, UNK
     Route: 042
     Dates: start: 20170313, end: 20170313
  16. MACPERAN [Concomitant]
     Active Substance: METOCLOPRAMIDE HYDROCHLORIDE
     Indication: PROPHYLAXIS
     Dosage: 10 MG, UNK
     Route: 042
     Dates: start: 20170314, end: 20170315
  17. NORZYME [Concomitant]
     Indication: PROPHYLAXIS
     Dosage: 1 DF, UNK
     Route: 048
     Dates: start: 20170313, end: 20170329
  18. DONG A GASTER [Concomitant]
     Dosage: 20 MG, UNK
     Route: 042
     Dates: start: 20170313, end: 20170313

REACTIONS (1)
  - Drug ineffective [Unknown]
